FAERS Safety Report 6058956-X (Version None)
Quarter: 2009Q1

REPORT INFORMATION
  Report Type: 
  Country: None (occurrence: None)
  Receive Date: 20090130
  Receipt Date: 20090129
  Transmission Date: 20090719
  Serious: No
  Sender: FDA-Public Use
  Company Number: A0750622A

PATIENT
  Age: 64 Year
  Sex: Female
  Weight: 80 kg

DRUGS (10)
  1. AVANDIA [Suspect]
     Dosage: 8MG PER DAY
     Route: 048
  2. GLYBURIDE [Concomitant]
     Dosage: 20MG PER DAY
     Route: 048
  3. METFORMIN [Concomitant]
     Dosage: 1000MG TWICE PER DAY
     Route: 048
  4. ABILIFY [Concomitant]
     Dosage: 10MG PER DAY
  5. SYNTHROID [Concomitant]
     Dosage: 75MCG PER DAY
  6. KLONOPIN [Concomitant]
  7. OXYBUTYNIN CHLORIDE [Concomitant]
     Dosage: 10MG IN THE MORNING
     Route: 048
  8. LITHIUM [Concomitant]
     Dosage: 300MG AT NIGHT
     Route: 048
  9. LEXAPRO [Concomitant]
     Indication: ANXIETY
     Dosage: 10MG TWICE PER DAY
  10. LOVASTATIN [Concomitant]
     Indication: BLOOD CHOLESTEROL INCREASED
     Dosage: 40MG AT NIGHT

REACTIONS (4)
  - BLOOD GLUCOSE DECREASED [None]
  - CONFUSIONAL STATE [None]
  - DRUG DISPENSING ERROR [None]
  - MALAISE [None]
